FAERS Safety Report 6526642-5 (Version None)
Quarter: 2009Q4

REPORT INFORMATION
  Report Type: 
  Country: None (occurrence: None)
  Receive Date: 20091230
  Receipt Date: 20091221
  Transmission Date: 20100525
  Serious: Yes (Death, Hospitalization)
  Sender: FDA-Public Use
  Company Number: ALL1-2009-04101

PATIENT
  Age: 58 Year
  Sex: Female
  Weight: 63.5 kg

DRUGS (18)
  1. FOSRENOL [Suspect]
     Indication: HYPERPHOSPHATAEMIA
     Dosage: SEE IMAGE
     Route: 048
     Dates: start: 20070720
  2. FOSRENOL [Suspect]
     Indication: HYPERPHOSPHATAEMIA
     Dosage: SEE IMAGE
     Route: 048
     Dates: start: 20070720
  3. FOSRENOL [Suspect]
     Indication: HYPERPHOSPHATAEMIA
     Dosage: SEE IMAGE
     Route: 048
     Dates: start: 20090720
  4. FOSRENOL [Suspect]
     Indication: HYPERPHOSPHATAEMIA
     Dosage: SEE IMAGE
     Route: 048
     Dates: start: 20090720
  5. HYDRAZINE SULFATE (HYDRAZINE SULFATE) [Concomitant]
  6. CLONAZEPAM [Concomitant]
  7. RENVELA [Concomitant]
  8. REQUIP [Concomitant]
  9. BUSPAR [Concomitant]
  10. FLEXERIL /00428402/ (CYCLOBENZAPRINE HYDROCHLORIDE) [Concomitant]
  11. AMBIEN [Concomitant]
  12. PROAMATINE [Concomitant]
  13. HYDROCODONE (HYDROCODONE) [Concomitant]
  14. EMLA /00675501/ (LIDOCAINE, PRILOCAINE) [Concomitant]
  15. PHENERGAN /00033001/ (PROMETHAZINE) [Concomitant]
  16. LEVOTHROID [Concomitant]
  17. CYMBALTA [Concomitant]
  18. TRAZODONE HCL [Concomitant]

REACTIONS (2)
  - CARDIAC ARREST [None]
  - PNEUMONIA [None]
